FAERS Safety Report 5585187-X (Version None)
Quarter: 2008Q1

REPORT INFORMATION
  Report Type: 
  Country: None (occurrence: None)
  Receive Date: 20080109
  Receipt Date: 20080107
  Transmission Date: 20080703
  Serious: Yes (Hospitalization)
  Sender: FDA-Public Use
  Company Number: IL-BRISTOL-MYERS SQUIBB COMPANY-14022669

PATIENT
  Age: 58 Year
  Sex: Female

DRUGS (3)
  1. BLINDED: IPILIMUMAB [Suspect]
     Indication: MALIGNANT MELANOMA
     Route: 042
     Dates: start: 20071213, end: 20071213
  2. BLINDED: PLACEBO [Suspect]
     Indication: MALIGNANT MELANOMA
     Route: 042
     Dates: start: 20071213, end: 20071213
  3. DTIC-DOME [Suspect]
     Indication: MALIGNANT MELANOMA
     Route: 042
     Dates: start: 20071213, end: 20071213

REACTIONS (3)
  - DIARRHOEA [None]
  - PYREXIA [None]
  - VOMITING [None]
